FAERS Safety Report 8535103-3 (Version None)
Quarter: 2012Q3

REPORT INFORMATION
  Report Type: 
  Country: None (occurrence: None)
  Receive Date: 20120724
  Receipt Date: 20120717
  Transmission Date: 20120928
  Serious: Yes (Hospitalization, Other)
  Sender: FDA-Public Use
  Company Number: FR-PFIZER INC-2009194367

PATIENT
  Age: 60 Year
  Sex: Female

DRUGS (8)
  1. ART 50 [Suspect]
     Dosage: UNK
  2. MEDIATOR [Suspect]
     Indication: DIABETES MELLITUS
     Dosage: 150 MG, 3X/DAY
     Dates: start: 19980101, end: 20080101
  3. PROZAC [Suspect]
     Indication: DEPRESSION
     Dosage: UNK
  4. NOCTRAN 10 [Suspect]
     Dosage: UNK
  5. AMITRIPTYLINE HYDROCHLORIDE [Suspect]
     Dosage: UNK
  6. NEULEPTIL [Suspect]
     Dosage: UNK
  7. ATORVASTATIN [Suspect]
     Dosage: UNK
  8. LEVOTHYROXINE SODIUM [Suspect]

REACTIONS (6)
  - DYSPNOEA EXERTIONAL [None]
  - MITRAL VALVE INCOMPETENCE [None]
  - PLEURAL EFFUSION [None]
  - ASCITES [None]
  - MITRAL VALVE DISEASE [None]
  - HEPATOJUGULAR REFLUX [None]
